FAERS Safety Report 17843047 (Version 1)
Quarter: 2020Q2

REPORT INFORMATION
  Report Type: Spontaneous
  Country: DE (occurrence: DE)
  Receive Date: 20200530
  Receipt Date: 20200530
  Transmission Date: 20200714
  Serious: Yes (Congenital Anomaly, Other)
  Sender: FDA-Public Use
  Company Number: NVSC2020DE065344

PATIENT

DRUGS (1)
  1. LISINOPRIL. [Suspect]
     Active Substance: LISINOPRIL
     Indication: FOETAL EXPOSURE DURING PREGNANCY
     Dosage: UNK (MATERNAL DOSE:UNKNOWN)
     Route: 064

REACTIONS (5)
  - Congenital renal disorder [Unknown]
  - Angiotensin converting enzyme inhibitor foetopathy [Unknown]
  - Foetal exposure during pregnancy [Unknown]
  - Renal impairment neonatal [Unknown]
  - Premature baby [Unknown]
